FAERS Safety Report 20567513 (Version 2)
Quarter: 2022Q4

REPORT INFORMATION
  Report Type: Report from Study
  Country: US (occurrence: US)
  Receive Date: 20220308
  Receipt Date: 20221119
  Transmission Date: 20230113
  Serious: Yes (Other)
  Sender: FDA-Public Use
  Company Number: US-TAKEDA-US202022472

PATIENT
  Sex: Female

DRUGS (1)
  1. HUMAN IMMUNOGLOBULIN G [Suspect]
     Active Substance: HUMAN IMMUNOGLOBULIN G
     Indication: Selective IgG subclass deficiency
     Dosage: UNK
     Route: 042
     Dates: end: 202112

REACTIONS (16)
  - Osteomyelitis [Unknown]
  - Feeling abnormal [Unknown]
  - Poor quality sleep [Unknown]
  - Fungal infection [Unknown]
  - Chronic granulomatous disease [Unknown]
  - Urinary tract infection [Unknown]
  - Neuralgia [Unknown]
  - Fabry^s disease [Unknown]
  - Blood immunoglobulin G decreased [Unknown]
  - Pain [Unknown]
  - Sinusitis [Unknown]
  - Lymphadenopathy [Unknown]
  - Headache [Unknown]
  - Nausea [Unknown]
  - COVID-19 [Unknown]
  - Infection [Recovering/Resolving]
